FAERS Safety Report 7513400-8 (Version None)
Quarter: 2011Q2

REPORT INFORMATION
  Report Type: 
  Country: None (occurrence: None)
  Receive Date: 20110531
  Receipt Date: 20110524
  Transmission Date: 20111010
  Serious: Yes (Death, Hospitalization)
  Sender: FDA-Public Use
  Company Number: JP-PFIZER INC-JP-WYE-H09676509

PATIENT
  Age: 67 Year
  Sex: Female
  Weight: 45 kg

DRUGS (6)
  1. FOSAMAX [Concomitant]
     Dosage: UNK
     Route: 048
     Dates: start: 20090420
  2. AZULFIDINE [Suspect]
     Indication: RHEUMATOID ARTHRITIS
     Dosage: 1000 MG, 1X/DAY
     Route: 048
     Dates: start: 20090420, end: 20090526
  3. ETODOLAC [Suspect]
     Indication: RHEUMATOID ARTHRITIS
     Dosage: 400.0 MG, 1X/DAY
     Route: 048
     Dates: start: 20090413
  4. PREDNISOLONE [Concomitant]
     Dosage: UNK
     Route: 048
  5. RHEUMATREX [Suspect]
     Indication: RHEUMATOID ARTHRITIS
     Dosage: 2.0 MG, 3X/WK
     Route: 048
     Dates: start: 20090527, end: 20090528
  6. FOLIC ACID [Concomitant]
     Dosage: UNK
     Route: 048
     Dates: start: 20090529, end: 20090529

REACTIONS (4)
  - PANCYTOPENIA [None]
  - ESCHERICHIA BACTERAEMIA [None]
  - SEPTIC SHOCK [None]
  - NASOPHARYNGITIS [None]
